FAERS Safety Report 9910730 (Version 2)
Quarter: 2014Q1

REPORT INFORMATION
  Report Type: Spontaneous
  Country: US (occurrence: US)
  Receive Date: 20140219
  Receipt Date: 20140219
  Transmission Date: 20141002
  Serious: No
  Sender: FDA-Public Use
  Company Number: US-GILEAD-2012-0053703

PATIENT
  Sex: Female
  Weight: 100.68 kg

DRUGS (13)
  1. LETAIRIS [Suspect]
     Indication: CONGENITAL PULMONARY HYPERTENSION
     Dosage: 10 MG, QD
     Route: 048
     Dates: start: 20110829
  2. TIKOSYN [Concomitant]
  3. ENALAPRIL MALEATE [Concomitant]
  4. ADVAIR HFA [Concomitant]
  5. LAMICTAL [Concomitant]
  6. ZOLOFT [Concomitant]
  7. ASPIRIN [Concomitant]
  8. VITAMIN C                          /00008001/ [Concomitant]
  9. PROAIR HFA [Concomitant]
  10. FISH OIL [Concomitant]
  11. PRENATAL VITAMINS                  /01549301/ [Concomitant]
  12. VITAMIN E                          /00110501/ [Concomitant]
  13. CALCIUM [Concomitant]

REACTIONS (1)
  - Migraine [Unknown]
